FAERS Safety Report 10525398 (Version 6)
Quarter: 2015Q4

REPORT INFORMATION
  Report Type: Report from Study
  Country: US (occurrence: US)
  Receive Date: 20141017
  Receipt Date: 20151207
  Transmission Date: 20160304
  Serious: Yes (Hospitalization, Other)
  Sender: FDA-Public Use
  Company Number: US-SA-2014SA114028

PATIENT
  Age: 43 Year
  Sex: Female

DRUGS (4)
  1. AUBAGIO [Suspect]
     Active Substance: TERIFLUNOMIDE
     Indication: MULTIPLE SCLEROSIS
     Route: 048
     Dates: start: 20140815, end: 20140922
  2. AUBAGIO [Suspect]
     Active Substance: TERIFLUNOMIDE
     Indication: MULTIPLE SCLEROSIS
     Route: 048
  3. AUBAGIO [Suspect]
     Active Substance: TERIFLUNOMIDE
     Indication: MULTIPLE SCLEROSIS
     Route: 048
     Dates: start: 201503, end: 20150611
  4. AUBAGIO [Suspect]
     Active Substance: TERIFLUNOMIDE
     Indication: MULTIPLE SCLEROSIS
     Route: 048
     Dates: end: 20151015

REACTIONS (21)
  - Neurodegenerative disorder [Unknown]
  - Malaise [Not Recovered/Not Resolved]
  - Drug dose omission [Unknown]
  - Multiple sclerosis relapse [Unknown]
  - Blood pressure abnormal [Unknown]
  - Memory impairment [Unknown]
  - Fatigue [Recovering/Resolving]
  - Headache [Not Recovered/Not Resolved]
  - Marburg^s variant multiple sclerosis [Unknown]
  - Diarrhoea [Recovering/Resolving]
  - Muscle spasms [Unknown]
  - Bowel movement irregularity [Not Recovered/Not Resolved]
  - Nausea [Recovering/Resolving]
  - Eating disorder [Not Recovered/Not Resolved]
  - Hypoaesthesia [Not Recovered/Not Resolved]
  - Nuclear magnetic resonance imaging abnormal [Unknown]
  - Central nervous system lesion [Unknown]
  - Body temperature [Unknown]
  - Hypoaesthesia [Recovering/Resolving]
  - Fatigue [Not Recovered/Not Resolved]
  - Paraesthesia [Not Recovered/Not Resolved]

NARRATIVE: CASE EVENT DATE: 201408
